FAERS Safety Report 15239541 (Version 2)
Quarter: 2018Q3

REPORT INFORMATION
  Report Type: Spontaneous
  Country: FR (occurrence: FR)
  Receive Date: 20180803
  Receipt Date: 20180904
  Transmission Date: 20181010
  Serious: Yes (Hospitalization, Other)
  Sender: FDA-Public Use
  Company Number: FR-ASTRAZENECA-2018SE97081

PATIENT
  Age: 87 Year
  Sex: Female
  Weight: 48 kg

DRUGS (8)
  1. LYRICA [Concomitant]
     Active Substance: PREGABALIN
     Indication: NEURALGIA
  2. LYNPARZA [Suspect]
     Active Substance: OLAPARIB
     Indication: METASTASES TO PERITONEUM
     Route: 048
     Dates: start: 20180111, end: 20180604
  3. LYNPARZA [Suspect]
     Active Substance: OLAPARIB
     Indication: OVARIAN CANCER
     Route: 048
     Dates: start: 20180111, end: 20180604
  4. LANSOPRAZOLE. [Concomitant]
     Active Substance: LANSOPRAZOLE
     Indication: GASTROOESOPHAGEAL REFLUX DISEASE
  5. SOLUPRED [Concomitant]
     Indication: PNEUMONITIS
     Dosage: 40 MG WAS PRESCRIBED FOR 48 HOURS
  6. FENSTATEN [Concomitant]
     Indication: HYPERTENSION
  7. LYNPARZA [Suspect]
     Active Substance: OLAPARIB
     Indication: METASTASES TO PERITONEUM
     Route: 048
     Dates: start: 201712
  8. LYNPARZA [Suspect]
     Active Substance: OLAPARIB
     Indication: OVARIAN CANCER
     Route: 048
     Dates: start: 201712

REACTIONS (14)
  - Dehydration [Unknown]
  - Fibrosis [Unknown]
  - Hypotension [Unknown]
  - Haemoglobin decreased [Unknown]
  - Decreased appetite [Unknown]
  - Interstitial lung disease [Recovered/Resolved]
  - Cough [Unknown]
  - General physical health deterioration [Unknown]
  - Dyspnoea [Unknown]
  - Malignant neoplasm progression [Unknown]
  - Metastases to lymph nodes [Unknown]
  - Carbohydrate antigen 125 increased [Unknown]
  - Vomiting [Unknown]
  - Fatigue [Unknown]

NARRATIVE: CASE EVENT DATE: 2017
